FAERS Safety Report 7637644-X (Version None)
Quarter: 2011Q3

REPORT INFORMATION
  Report Type: 
  Country: None (occurrence: None)
  Receive Date: 20110726
  Receipt Date: 20110722
  Transmission Date: 20111222
  Serious: Yes (Hospitalization)
  Sender: FDA-Public Use
  Company Number: JP-MERCK-1102USA02425

PATIENT
  Age: 51 Year
  Sex: Female

DRUGS (4)
  1. AMARYL [Concomitant]
     Indication: DIABETES MELLITUS
     Route: 048
     Dates: start: 20090101
  2. JANUVIA [Suspect]
     Indication: DIABETES MELLITUS
     Route: 048
     Dates: start: 20100530
  3. HYZAAR [Concomitant]
     Route: 048
     Dates: start: 20090101
  4. AMLODIPINE BESYLATE [Concomitant]
     Indication: HYPERTENSION
     Route: 048
     Dates: start: 20090101

REACTIONS (4)
  - SYNCOPE [None]
  - FALL [None]
  - ANGINA UNSTABLE [None]
  - ORTHOSTATIC HYPOTENSION [None]
